FAERS Safety Report 5684989-9 (Version None)
Quarter: 2008Q1

REPORT INFORMATION
  Report Type: 
  Country: None (occurrence: None)
  Receive Date: 20080328
  Receipt Date: 20080317
  Transmission Date: 20080703
  Serious: Yes (Other)
  Sender: FDA-Public Use
  Company Number: DEWYE019813JUL07

PATIENT
  Sex: Female
  Weight: 55 kg

DRUGS (1)
  1. TREVILOR RETARD [Suspect]
     Indication: ANXIETY
     Route: 048

REACTIONS (7)
  - DRUG EXPOSURE DURING PREGNANCY [None]
  - HAEMOGLOBIN DECREASED [None]
  - PREGNANCY [None]
  - PREMATURE LABOUR [None]
  - PREMATURE RUPTURE OF MEMBRANES [None]
  - PROLONGED LABOUR [None]
  - UTERINE HYPOTONUS [None]
